FAERS Safety Report 5127502-7 (Version None)
Quarter: 2006Q4

REPORT INFORMATION
  Report Type: 
  Country: None (occurrence: None)
  Receive Date: 20061016
  Receipt Date: 20060807
  Transmission Date: 20070319
  Serious: Yes (Other)
  Sender: FDA-Public Use
  Company Number: PHBS2006JP11865

PATIENT
  Age: 83 Year
  Sex: Female
  Weight: 68 kg

DRUGS (7)
  1. DIOVAN [Suspect]
     Indication: HYPERTENSION
     Dosage: 80 MG/DAY
     Route: 048
     Dates: start: 20050101
  2. DIOVAN [Suspect]
     Dosage: 80 MG/DAY
     Route: 048
     Dates: start: 20060310, end: 20060320
  3. NORVASC [Suspect]
     Dosage: 5 MG/DAY
     Route: 048
     Dates: start: 20030101, end: 20060101
  4. LASIX [Concomitant]
     Indication: HYPERTENSION
     Dosage: 20 MG, UNK
     Route: 048
     Dates: start: 20050101
  5. PERSANTIN-L [Concomitant]
     Indication: PROTEINURIA
     Dosage: 300 MG, UNK
     Route: 048
  6. ISOSORBIDE MONONITRATE [Concomitant]
     Indication: ANGINA PECTORIS
     Dosage: 40 MG, UNK
     Route: 048
  7. GASTER D [Concomitant]
     Indication: GASTROOESOPHAGEAL REFLUX DISEASE
     Dosage: 20 MG, UNK
     Route: 048
     Dates: start: 20041001, end: 20060101

REACTIONS (4)
  - ERYTHEMA MULTIFORME [None]
  - ERYTHEMA NODOSUM [None]
  - PRURITUS [None]
  - RASH [None]
